FAERS Safety Report 9035532 (Version 1)
Quarter: 2013Q1

REPORT INFORMATION
  Report Type: Spontaneous
  Country: US (occurrence: US)
  Receive Date: 20130129
  Receipt Date: 20130129
  Transmission Date: 20140127
  Serious: No
  Sender: FDA-Public Use
  Company Number: US-GLAXOSMITHKLINE-A0992000A

PATIENT
  Age: 60 Year
  Sex: Female

DRUGS (2)
  1. MEPRON [Suspect]
     Indication: LYME DISEASE
     Route: 048
  2. MALARONE [Suspect]
     Indication: LYME DISEASE
     Dosage: 3TAB TWICE PER DAY
     Route: 048

REACTIONS (2)
  - Adverse event [Unknown]
  - Prescribed overdose [Unknown]
